FAERS Safety Report 20320830 (Version 1)
Quarter: 2022Q1

REPORT INFORMATION
  Report Type: Spontaneous
  Country: US (occurrence: None)
  Receive Date: 20220111
  Receipt Date: 20220111
  Transmission Date: 20220423
  Serious: Yes (Hospitalization, Other)
  Sender: FDA-Public Use
  Company Number: US-Hikma Pharmaceuticals USA Inc.-US-H14001-21-05695

PATIENT
  Sex: Male

DRUGS (3)
  1. DISULFIRAM [Suspect]
     Active Substance: DISULFIRAM
     Indication: Lyme disease
     Route: 065
  2. TINIDAZOLE [Suspect]
     Active Substance: TINIDAZOLE
     Indication: Lyme disease
     Route: 065
  3. MINOCYCLINE [Concomitant]
     Active Substance: MINOCYCLINE HYDROCHLORIDE
     Indication: Lyme disease
     Dosage: UNKNOWN
     Route: 065

REACTIONS (6)
  - Toxicity to various agents [Not Recovered/Not Resolved]
  - Peripheral sensory neuropathy [Not Recovered/Not Resolved]
  - Peripheral motor neuropathy [Not Recovered/Not Resolved]
  - Drug interaction [Unknown]
  - Nervous system disorder [Unknown]
  - Wrong dose [Unknown]
